FAERS Safety Report 10178649 (Version 1)
Quarter: 2014Q2

REPORT INFORMATION
  Report Type: Spontaneous
  Country: US (occurrence: None)
  Receive Date: 20140516
  Receipt Date: 20140516
  Transmission Date: 20141212
  Serious: Yes (Hospitalization, Disabling)
  Sender: FDA-Public Use
  Company Number: None

PATIENT
  Age: 71 Year
  Sex: Male
  Weight: 71.22 kg

DRUGS (5)
  1. DEPAKOTE [Suspect]
     Indication: DEMENTIA
     Dosage: 125 MG -} SPRINKLES- ONCE DAILY- MOUTH?500 MG -} CAPSULE-ONCE DAILY-MOUTH?1-125-500 MG - CAPSULE
     Route: 048
     Dates: start: 201401
  2. MELATONIN [Concomitant]
  3. REMERON SOLTAB [Concomitant]
  4. ZYPREXAYDIS [Concomitant]
  5. VALIUM [Concomitant]

REACTIONS (8)
  - Abasia [None]
  - Aphasia [None]
  - Incontinence [None]
  - Somnolence [None]
  - Rash [None]
  - Weight decreased [None]
  - Lethargy [None]
  - Activities of daily living impaired [None]
